FAERS Safety Report 11716211 (Version 2)
Quarter: 2015Q4

REPORT INFORMATION
  Report Type: Spontaneous
  Country: US (occurrence: US)
  Receive Date: 20151104
  Receipt Date: 20151110
  Transmission Date: 20160304
  Serious: No
  Sender: FDA-Public Use
  Company Number: US-ELI_LILLY_AND_COMPANY-US201103001207

PATIENT
  Age: 67 Year
  Sex: Male

DRUGS (6)
  1. FORTEO [Suspect]
     Active Substance: TERIPARATIDE
     Indication: OSTEOPOROSIS
     Dosage: 20 UG, QD
     Route: 065
     Dates: start: 201102
  2. FORTEO [Suspect]
     Active Substance: TERIPARATIDE
     Dosage: 20 UG, QD
  3. FORTEO [Suspect]
     Active Substance: TERIPARATIDE
     Dosage: 20 UG, QD
     Route: 065
  4. FORTEO [Suspect]
     Active Substance: TERIPARATIDE
     Dosage: 20 UG, QD
     Route: 065
  5. FORTEO [Suspect]
     Active Substance: TERIPARATIDE
     Dosage: 20 UG, QD
     Route: 065
     Dates: end: 201103
  6. COUMADIN [Concomitant]
     Active Substance: WARFARIN SODIUM

REACTIONS (11)
  - Inguinal hernia [Not Recovered/Not Resolved]
  - Rash macular [Recovering/Resolving]
  - Speech disorder [Unknown]
  - Sleep disorder [Unknown]
  - Meniscus injury [Unknown]
  - Drug level changed [Unknown]
  - Cataract [Unknown]
  - Rash [Recovering/Resolving]
  - Pneumonia [Unknown]
  - Systemic lupus erythematosus [Unknown]
  - Injection site pain [Unknown]

NARRATIVE: CASE EVENT DATE: 201109
